FAERS Safety Report 4510678-X (Version None)
Quarter: 2004Q4

REPORT INFORMATION
  Report Type: 
  Country: None (occurrence: None)
  Receive Date: 20041025
  Receipt Date: 20040116
  Transmission Date: 20050328
  Serious: Yes (Hospitalization)
  Sender: FDA-Public Use
  Company Number: NSADSS2002035601

PATIENT
  Age: 43 Year
  Sex: Female
  Weight: 81.1939 kg

DRUGS (19)
  1. REMICADE [Suspect]
     Indication: RHEUMATOID ARTHRITIS
     Dosage: 300 MG, 1 IN 1 AS NECCESSARY, INTRAVENOUS DRIP
     Route: 041
     Dates: start: 20020924, end: 20020924
  2. SULFASALAZINE [Concomitant]
  3. CELEBREX [Concomitant]
  4. METHOTREXATE [Concomitant]
  5. PNEUMOCOCCAL VACINE (PNEUMOCOCCAL VACCINE) [Concomitant]
  6. ANERGY PANEL (ALL OTHER THERAPEUTIC PRODUCTS) [Concomitant]
  7. ZANTAC [Concomitant]
  8. FOLIC ACID [Concomitant]
  9. INDEROL (PROPRANOLOL HYDROCHLORIDE) [Concomitant]
  10. AZULFIDINE [Concomitant]
  11. PREDNISONE [Concomitant]
  12. PLAQUENIL [Concomitant]
  13. NORTRIPTYLLINE (NORTRIPTYLINE) [Concomitant]
  14. PREMPHASE (PROVELLA-14) [Concomitant]
  15. AMBIEN [Concomitant]
  16. DARVOCET [Concomitant]
  17. CELEBREX [Concomitant]
  18. ASPERCREME (TROLAMINE SALICYLATE) [Concomitant]
  19. CALCIUM (CALCIUM) [Concomitant]

REACTIONS (2)
  - SERUM SICKNESS [None]
  - URTICARIA [None]
